FAERS Safety Report 9405990 (Version 2)
Quarter: 2013Q3

REPORT INFORMATION
  Report Type: Spontaneous
  Country: IL (occurrence: IL)
  Receive Date: 20130717
  Receipt Date: 20130725
  Transmission Date: 20140515
  Serious: Yes (Other)
  Sender: FDA-Public Use
  Company Number: IL-PFIZER INC-2013208412

PATIENT
  Age: 60 Year
  Sex: Male

DRUGS (1)
  1. CHAMPIX [Suspect]
     Indication: SMOKING CESSATION THERAPY
     Dosage: 1 MG, 1X/DAY
     Route: 048
     Dates: start: 20130601, end: 20130701

REACTIONS (6)
  - Depression [Recovering/Resolving]
  - Activities of daily living impaired [Recovering/Resolving]
  - Fatigue [Recovering/Resolving]
  - Abnormal behaviour [Recovering/Resolving]
  - Paranoia [Recovering/Resolving]
  - Feeling abnormal [Recovering/Resolving]
